FAERS Safety Report 15941611 (Version 1)
Quarter: 2019Q1

REPORT INFORMATION
  Report Type: Spontaneous
  Country: US (occurrence: US)
  Receive Date: 20190118
  Receipt Date: 20190118
  Transmission Date: 20190417
  Serious: Yes (Death)
  Sender: FDA-Public Use
  Company Number: None

PATIENT
  Age: 11 Year
  Sex: Female
  Weight: 71.6 kg

DRUGS (6)
  1. PREDNISONE. [Suspect]
     Active Substance: PREDNISONE
     Dates: end: 20181221
  2. ONCASPAR [Suspect]
     Active Substance: PEGASPARGASE
     Dates: end: 20181126
  3. CYTARABINE. [Suspect]
     Active Substance: CYTARABINE
     Dates: end: 20181123
  4. VINCRISTINE SULFATE. [Suspect]
     Active Substance: VINCRISTINE SULFATE
     Dates: end: 20181214
  5. DAUNORUBICIN [Suspect]
     Active Substance: DAUNORUBICIN
     Dates: end: 20181214
  6. METHOTREXATE. [Suspect]
     Active Substance: METHOTREXATE
     Dates: end: 20181214

REACTIONS (9)
  - Liver injury [None]
  - Ventricular fibrillation [None]
  - Hepatic steatosis [None]
  - Mouth haemorrhage [None]
  - Unresponsive to stimuli [None]
  - Haemoglobin decreased [None]
  - Cholestasis [None]
  - Cardiac arrest [None]
  - Packed red blood cell transfusion [None]

NARRATIVE: CASE EVENT DATE: 20181228
